FAERS Safety Report 6083680-7 (Version None)
Quarter: 2009Q1

REPORT INFORMATION
  Report Type: 
  Country: None (occurrence: None)
  Receive Date: 20090219
  Receipt Date: 20090209
  Transmission Date: 20090719
  Serious: Yes (Hospitalization, Other)
  Sender: FDA-Public Use
  Company Number: FI-AMGEN-UK328461

PATIENT
  Sex: Male

DRUGS (6)
  1. NEULASTA [Suspect]
     Indication: NEUTROPENIA
     Route: 065
     Dates: start: 20041116
  2. NEULASTA [Suspect]
     Route: 065
     Dates: start: 20041212, end: 20041212
  3. NEULASTA [Suspect]
     Route: 065
     Dates: start: 20050115, end: 20050115
  4. NEULASTA [Suspect]
     Route: 065
  5. NEULASTA [Suspect]
     Route: 065
     Dates: start: 20050822, end: 20050822
  6. NEULASTA [Suspect]
     Route: 065
     Dates: start: 20050904, end: 20050904

REACTIONS (3)
  - BONE PAIN [None]
  - FEBRILE NEUTROPENIA [None]
  - TONGUE ABSCESS [None]
